FAERS Safety Report 7754282-9 (Version None)
Quarter: 2011Q3

REPORT INFORMATION
  Report Type: 
  Country: None (occurrence: None)
  Receive Date: 20110915
  Receipt Date: 20110907
  Transmission Date: 20111222
  Serious: Yes (Other)
  Sender: FDA-Public Use
  Company Number: KR-ELI_LILLY_AND_COMPANY-KR201109000800

PATIENT
  Age: 34 Year
  Sex: Female

DRUGS (5)
  1. BYETTA [Suspect]
     Indication: TYPE 2 DIABETES MELLITUS
     Dosage: 5 UG, EACH MORNING
     Route: 058
     Dates: start: 20110327, end: 20110401
  2. BYETTA [Suspect]
     Dosage: 10 UG, BID
     Route: 058
     Dates: start: 20110903
  3. ORAL ANTIDIABETICS [Concomitant]
     Dosage: UNK, UNKNOWN
     Route: 048
  4. BYETTA [Suspect]
     Dosage: 10 UG, QD
     Route: 058
     Dates: start: 20110401, end: 20110902
  5. ORAL ANTIDIABETICS [Concomitant]
     Dosage: UNK, BID
     Route: 048

REACTIONS (4)
  - HYPERGLYCAEMIA [None]
  - PRURITUS GENITAL [None]
  - INTRAOCULAR PRESSURE INCREASED [None]
  - EYE PAIN [None]
